FAERS Safety Report 22031093 (Version 1)
Quarter: 2023Q1

REPORT INFORMATION
  Report Type: Spontaneous
  Country: GB (occurrence: GB)
  Receive Date: 20230223
  Receipt Date: 20230223
  Transmission Date: 20230418
  Serious: Yes (Disabling, Other)
  Sender: FDA-Public Use
  Company Number: None

PATIENT
  Sex: Male

DRUGS (1)
  1. CIPROFLOXACIN [Suspect]
     Active Substance: CIPROFLOXACIN
     Indication: Product used for unknown indication
     Dosage: UNK
     Route: 065
     Dates: start: 202102

REACTIONS (13)
  - Joint stiffness [Unknown]
  - Pain in extremity [Unknown]
  - Anxiety [Unknown]
  - Burning sensation [Recovering/Resolving]
  - Arthralgia [Recovering/Resolving]
  - Lymphadenopathy [Unknown]
  - Gastrointestinal disorder [Unknown]
  - Headache [Unknown]
  - Rhinitis [Unknown]
  - Urinary tract disorder [Unknown]
  - Fatigue [Unknown]
  - Toxicity to various agents [Unknown]
  - Product communication issue [Unknown]
